FAERS Safety Report 5133670-3 (Version None)
Quarter: 2006Q4

REPORT INFORMATION
  Report Type: 
  Country: None (occurrence: None)
  Receive Date: 20061024
  Receipt Date: 20061016
  Transmission Date: 20070319
  Serious: Yes (Hospitalization)
  Sender: FDA-Public Use
  Company Number: FR-AVENTIS-200613619FR

PATIENT
  Age: 86 Year
  Sex: Female

DRUGS (5)
  1. BIRODOGYL [Suspect]
     Indication: TOOTH ABSCESS
     Route: 048
     Dates: start: 20060731, end: 20060805
  2. BISOPROLOL FUMARATE [Concomitant]
     Indication: ESSENTIAL HYPERTENSION
     Route: 048
  3. ATARAX                             /00058402/ [Concomitant]
     Route: 048
  4. ALLOPURINOL [Concomitant]
     Route: 048
  5. HYZAAR [Concomitant]
     Indication: ESSENTIAL HYPERTENSION
     Route: 048

REACTIONS (3)
  - PRURITUS [None]
  - PURPURA [None]
  - RASH SCARLATINIFORM [None]
